FAERS Safety Report 22146413 (Version 7)
Quarter: 2023Q2

REPORT INFORMATION
  Report Type: Spontaneous
  Country: US (occurrence: US)
  Receive Date: 20230328
  Receipt Date: 20230612
  Transmission Date: 20230722
  Serious: No
  Sender: FDA-Public Use
  Company Number: US-BIOGEN-2023BI01195846

PATIENT
  Sex: Female

DRUGS (1)
  1. TYSABRI [Suspect]
     Active Substance: NATALIZUMAB
     Indication: Multiple sclerosis
     Route: 050
     Dates: start: 20130416, end: 20221216

REACTIONS (14)
  - Product dose omission issue [Not Recovered/Not Resolved]
  - Inappropriate schedule of product administration [Unknown]
  - Discomfort [Unknown]
  - Dyspepsia [Unknown]
  - Head injury [Unknown]
  - Memory impairment [Unknown]
  - Multiple sclerosis [Unknown]
  - Chest pain [Recovered/Resolved]
  - Fall [Recovered/Resolved]
  - Arthralgia [Not Recovered/Not Resolved]
  - Pain in extremity [Not Recovered/Not Resolved]
  - Fatigue [Not Recovered/Not Resolved]
  - Dizziness [Unknown]
  - Rash [Unknown]
